FAERS Safety Report 6356926-5 (Version None)
Quarter: 2009Q3

REPORT INFORMATION
  Report Type: 
  Country: None (occurrence: None)
  Receive Date: 20090915
  Receipt Date: 20090907
  Transmission Date: 20100115
  Serious: Yes (Hospitalization)
  Sender: FDA-Public Use
  Company Number: AU-PFIZER INC-2009255980

PATIENT
  Age: 58 Year

DRUGS (16)
  1. CELECOXIB [Suspect]
     Indication: OSTEOARTHRITIS
     Dosage: UNK
     Route: 048
     Dates: start: 20090721, end: 20090817
  2. LANTUS [Concomitant]
     Dosage: UNK
     Route: 058
  3. ACTOS [Concomitant]
     Dosage: UNK
     Route: 048
  4. DIAFORMIN [Concomitant]
     Dosage: UNK
     Route: 048
  5. RAMIPRIL [Concomitant]
     Dosage: UNK
     Route: 048
  6. MONODUR [Concomitant]
     Dosage: UNK
     Route: 048
  7. SIMVASTATIN [Concomitant]
     Dosage: UNK
     Route: 048
  8. ACETYLSALICYLIC ACID [Concomitant]
     Dosage: UNK
     Route: 048
  9. BUPRENORPHINE [Concomitant]
     Dosage: UNK
     Route: 062
  10. EFFEXOR XR [Concomitant]
     Dosage: UNK
     Route: 048
  11. ENDEP [Concomitant]
     Dosage: UNK
     Route: 048
  12. GABAPENTIN [Concomitant]
     Dosage: UNK
     Route: 048
  13. ENDONE [Concomitant]
     Dosage: UNK
     Route: 048
  14. PARACETAMOL [Concomitant]
     Dosage: UNK
     Route: 048
  15. VENTOLIN [Concomitant]
  16. NEXIUM [Concomitant]
     Dosage: 20 MG, UNK

REACTIONS (1)
  - NEUROLOGICAL DECOMPENSATION [None]
